FAERS Safety Report 16427893 (Version 1)
Quarter: 2019Q2

REPORT INFORMATION
  Report Type: Spontaneous
  Country: JP (occurrence: JP)
  Receive Date: 20190613
  Receipt Date: 20190613
  Transmission Date: 20190711
  Serious: Yes (Hospitalization, Other)
  Sender: FDA-Public Use
  Company Number: JP-009507513-1905JPN002234J

PATIENT
  Age: 67 Year
  Sex: Male

DRUGS (1)
  1. KEYTRUDA [Suspect]
     Active Substance: PEMBROLIZUMAB
     Indication: HODGKIN^S DISEASE
     Dosage: 200 MILLIGRAM, Q3W
     Route: 041
     Dates: start: 201806, end: 201807

REACTIONS (6)
  - Rash [Unknown]
  - Aplasia pure red cell [Unknown]
  - Pemphigoid [Unknown]
  - Blister [Unknown]
  - Sarcoidosis [Unknown]
  - Oral mucosa erosion [Unknown]

NARRATIVE: CASE EVENT DATE: 201905
